FAERS Safety Report 9647647 (Version 1)
Quarter: 2013Q4

REPORT INFORMATION
  Report Type: Spontaneous
  Country: US (occurrence: None)
  Receive Date: 20131024
  Receipt Date: 20131024
  Transmission Date: 20140711
  Serious: Yes (Other)
  Sender: FDA-Public Use
  Company Number: None

PATIENT
  Age: 68 Year
  Sex: Male
  Weight: 77.11 kg

DRUGS (1)
  1. DICLOFENAC SODIUM/MISOPROSTOL [Suspect]
     Indication: SYSTEMIC LUPUS ERYTHEMATOSUS
     Dosage: 75-0.2  TWICE DAILY  TAKEN BY MOUTH
     Route: 048
     Dates: start: 20131024, end: 20131125

REACTIONS (3)
  - Nausea [None]
  - Malaise [None]
  - Product physical issue [None]
